FAERS Safety Report 5005295-1 (Version None)
Quarter: 2006Q2

REPORT INFORMATION
  Report Type: 
  Country: None (occurrence: None)
  Receive Date: 20060518
  Receipt Date: 20060421
  Transmission Date: 20061013
  Serious: Yes (Hospitalization)
  Sender: FDA-Public Use
  Company Number: JP-JPN-A200601327

PATIENT
  Age: 76 Year
  Sex: Male
  Weight: 63 kg

DRUGS (16)
  1. VALTREX [Suspect]
     Indication: HERPES ZOSTER
     Dosage: 1000MG THREE TIMES PER DAY
     Route: 048
     Dates: start: 20060417, end: 20060420
  2. ACYCLOVIR [Suspect]
     Indication: HERPES ZOSTER
     Dosage: 500MG TWICE PER DAY
     Route: 042
     Dates: start: 20060417, end: 20060420
  3. SYLLABLE [Suspect]
     Indication: HERPES ZOSTER
     Dosage: 100MG THREE TIMES PER DAY
     Route: 048
     Dates: start: 20060417, end: 20060420
  4. CELOOP [Suspect]
     Indication: GASTRITIS
     Dosage: 50MG THREE TIMES PER DAY
     Route: 048
     Dates: start: 20060417, end: 20060420
  5. PL [Concomitant]
     Indication: NASOPHARYNGITIS
     Dosage: 3G PER DAY
     Route: 048
     Dates: start: 20060418, end: 20060420
  6. FLAVERIC [Concomitant]
     Indication: COUGH
     Dosage: 60MG PER DAY
     Route: 048
     Dates: start: 20060418, end: 20060420
  7. FLIVAS [Concomitant]
     Indication: BENIGN PROSTATIC HYPERPLASIA
     Dosage: 50MG PER DAY
     Route: 048
  8. HYDROCHLORIC ACID [Concomitant]
     Indication: POLLAKIURIA
     Dosage: 400MG PER DAY
     Route: 048
  9. BLOPRESS [Concomitant]
     Indication: HYPERTENSION
     Dosage: 4MG PER DAY
     Route: 048
  10. PRAVASTATIN SODIUM [Concomitant]
     Dosage: 10MG PER DAY
     Route: 048
  11. AMARYL [Concomitant]
     Indication: DIABETES MELLITUS
     Dosage: 1MG PER DAY
     Route: 048
  12. ACTOS [Concomitant]
     Indication: DIABETES MELLITUS
     Dosage: 15MG PER DAY
     Route: 048
  13. MUCOSTA [Concomitant]
     Indication: GASTRITIS
     Dosage: 300MG PER DAY
     Route: 048
  14. BENEXATE [Concomitant]
     Indication: GASTRITIS
     Dosage: 600MG PER DAY
  15. ANTAGOSTIN [Concomitant]
     Indication: GASTRITIS
     Dosage: 1.5G PER DAY
     Route: 048
  16. IRSOGLADINE MALEATE [Concomitant]
     Indication: GASTRITIS
     Dosage: .5G PER DAY
     Route: 048

REACTIONS (4)
  - BLOOD CREATININE INCREASED [None]
  - BLOOD UREA INCREASED [None]
  - OEDEMA [None]
  - RENAL FAILURE ACUTE [None]
